FAERS Safety Report 9744132 (Version 1)
Quarter: 2013Q4

REPORT INFORMATION
  Report Type: Spontaneous
  Country: US (occurrence: US)
  Receive Date: 20131210
  Receipt Date: 20131210
  Transmission Date: 20140711
  Serious: No
  Sender: FDA-Public Use
  Company Number: US-009507513-1307USA016488

PATIENT
  Age: 27 Year
  Sex: Female

DRUGS (1)
  1. DR. SCHOLLS CORN/CALLUS REMOVER [Suspect]
     Indication: HYPERKERATOSIS
     Dosage: UNK, QD
     Route: 061
     Dates: start: 20130706

REACTIONS (2)
  - Application site pallor [Recovering/Resolving]
  - Application site pain [Recovering/Resolving]
